FAERS Safety Report 7692554-7 (Version None)
Quarter: 2011Q3

REPORT INFORMATION
  Report Type: 
  Country: None (occurrence: None)
  Receive Date: 20110819
  Receipt Date: 20110815
  Transmission Date: 20111222
  Serious: Yes (Other)
  Sender: FDA-Public Use
  Company Number: NL-AMGEN-NLDSP2011025632

PATIENT
  Age: 73 Year
  Sex: Female

DRUGS (10)
  1. ACETYLCYSTEINE [Concomitant]
     Dosage: UNK
  2. FOLIC ACID [Concomitant]
     Dosage: 10 MG, UNK
  3. AMLODIPINE [Concomitant]
     Dosage: 5 MG, UNK
  4. EBRANTIL                           /00631801/ [Concomitant]
     Dosage: 30 MG, 2X/DAY
  5. HYDROCHLOROTHIAZID [Concomitant]
     Dosage: 12.5 MG, UNK
  6. DIOVAN [Concomitant]
     Dosage: 160 MG, UNK
  7. MTX                                /00113801/ [Concomitant]
     Indication: RHEUMATOID ARTHRITIS
     Dosage: 15 MG, WEEKLY
     Route: 058
  8. CALCICHEW-D3 [Concomitant]
     Dosage: 50 MG, UNK
  9. RANITIDINE [Concomitant]
     Dosage: UNK
  10. ENBREL [Suspect]
     Indication: RHEUMATOID ARTHRITIS
     Dosage: 50 MG, WEEKLY

REACTIONS (5)
  - BRONCHITIS [None]
  - DYSPNOEA [None]
  - UPPER LIMB FRACTURE [None]
  - FATIGUE [None]
  - UPPER RESPIRATORY TRACT INFECTION [None]
